FAERS Safety Report 4533301-7 (Version None)
Quarter: 2004Q4

REPORT INFORMATION
  Report Type: 
  Country: None (occurrence: None)
  Receive Date: 20041221
  Receipt Date: 20041012
  Transmission Date: 20050328
  Serious: Yes (Hospitalization)
  Sender: FDA-Public Use
  Company Number: PHEH2004US11043

PATIENT
  Age: 43 Year
  Sex: Female
  Weight: 74 kg

DRUGS (11)
  1. OXYBUTYNIN [Concomitant]
  2. LEXAPRO [Concomitant]
  3. RANITIDINE [Concomitant]
  4. NEURONTIN [Concomitant]
  5. COLACE [Concomitant]
  6. CLONIDINE [Concomitant]
  7. OXYCODONE [Concomitant]
  8. ZOFRAN [Concomitant]
  9. LORTAB [Concomitant]
  10. HYDROXYZINE [Concomitant]
  11. ZELNORM [Suspect]
     Indication: IRRITABLE BOWEL SYNDROME
     Dosage: 6 MG, BID
     Route: 048
     Dates: start: 20030804, end: 20041002

REACTIONS (3)
  - ALANINE AMINOTRANSFERASE INCREASED [None]
  - ASPARTATE AMINOTRANSFERASE INCREASED [None]
  - TRANSAMINASES INCREASED [None]
